FAERS Safety Report 6192375-0 (Version None)
Quarter: 2009Q2

REPORT INFORMATION
  Report Type: 
  Country: None (occurrence: None)
  Receive Date: 20090518
  Receipt Date: 20080118
  Transmission Date: 20091009
  Serious: Yes (Hospitalization)
  Sender: FDA-Public Use
  Company Number: US-ASTRAZENECA-2006UW10859

PATIENT
  Age: 17651 Day
  Sex: Male
  Weight: 81.2 kg

DRUGS (16)
  1. SEROQUEL [Suspect]
     Route: 048
     Dates: start: 20040315
  2. SEROQUEL [Suspect]
     Route: 048
     Dates: start: 20030930
  3. SEROQUEL [Suspect]
     Dosage: 300 MG TABLET TAKE TWO TAB AT BEDTIME
     Route: 048
     Dates: start: 20050125
  4. SEROQUEL [Suspect]
     Route: 048
     Dates: start: 20061011
  5. SEROQUEL [Suspect]
     Dosage: 400 MG TAB TAKE ONE AND ONE HALF TABLET BY MOUTH AT BEDTIME
     Route: 048
     Dates: start: 20071101
  6. ALBUTEROL [Concomitant]
     Dosage: 90 MCG 200 D (FOUR TIMES A DAY)
     Route: 065
  7. CLONAZEPAM [Concomitant]
     Route: 065
  8. LORATADINE [Concomitant]
     Indication: MULTIPLE ALLERGIES
     Route: 048
  9. METFORMIN HCL [Concomitant]
     Route: 048
  10. RANITIDINE [Concomitant]
     Route: 048
  11. TRAZODONE HCL [Concomitant]
     Route: 048
  12. TRIAMCINOLONE [Concomitant]
     Dosage: 0.1% TWICE DAILY AS NEEDED
     Route: 065
  13. HYDROCODONE BITARTRATE [Concomitant]
     Indication: PAIN
     Route: 048
  14. VALPROIC ACID [Concomitant]
     Route: 048
  15. IBUPROFEN [Concomitant]
     Route: 048
  16. MOMETASONE FUROATE [Concomitant]
     Dosage: 220 MCG ORAL INHALATION 1 PUFF EVERY EVENING
     Route: 065

REACTIONS (4)
  - ADJUSTMENT DISORDER WITH MIXED DISTURBANCE OF EMOTION AND CONDUCT [None]
  - BIPOLAR DISORDER [None]
  - DIABETES MELLITUS [None]
  - SUBSTANCE ABUSE [None]
